FAERS Safety Report 8536389-1 (Version None)
Quarter: 2012Q3

REPORT INFORMATION
  Report Type: 
  Country: None (occurrence: None)
  Receive Date: 20120725
  Receipt Date: 20120723
  Transmission Date: 20120928
  Serious: Yes (Other)
  Sender: FDA-Public Use
  Company Number: CN-ROCHE-1091441

PATIENT
  Age: 53 Year
  Sex: Female

DRUGS (3)
  1. HERCEPTIN [Suspect]
     Dates: start: 20111026, end: 20111124
  2. HERCEPTIN [Suspect]
     Indication: BREAST CANCER
     Dates: start: 20110726
  3. HERCEPTIN [Suspect]
     Dates: start: 20120201

REACTIONS (1)
  - DRUG-INDUCED LIVER INJURY [None]
